FAERS Safety Report 7377321-6 (Version None)
Quarter: 2011Q1

REPORT INFORMATION
  Report Type: 
  Country: None (occurrence: None)
  Receive Date: 20110328
  Receipt Date: 20110318
  Transmission Date: 20110831
  Serious: Yes (Other)
  Sender: FDA-Public Use
  Company Number: US-JNJFOC-20080704185

PATIENT
  Sex: Male
  Weight: 113.4 kg

DRUGS (7)
  1. LAMICTAL [Concomitant]
     Indication: BIPOLAR I DISORDER
     Route: 065
  2. STELAZINE [Concomitant]
     Route: 065
  3. ABILIFY [Concomitant]
     Route: 065
  4. RISPERDAL [Suspect]
     Indication: BIPOLAR I DISORDER
     Route: 048
  5. RISPERDAL [Suspect]
     Indication: BIPOLAR DISORDER
     Route: 048
  6. LEXAPRO [Concomitant]
     Indication: BIPOLAR I DISORDER
     Route: 065
  7. SEROQUEL [Suspect]
     Indication: BIPOLAR DISORDER
     Route: 065

REACTIONS (11)
  - IMPULSIVE BEHAVIOUR [None]
  - DYSTONIA [None]
  - TARDIVE DYSKINESIA [None]
  - ANXIETY [None]
  - SUICIDAL IDEATION [None]
  - AKATHISIA [None]
  - GYNAECOMASTIA [None]
  - INAPPROPRIATE SCHEDULE OF DRUG ADMINISTRATION [None]
  - AGITATION [None]
  - BREAST TENDERNESS [None]
  - HYPERPROLACTINAEMIA [None]
